FAERS Safety Report 13702080 (Version 1)
Quarter: 2017Q2

REPORT INFORMATION
  Report Type: Spontaneous
  Country: US (occurrence: US)
  Receive Date: 20170629
  Receipt Date: 20170629
  Transmission Date: 20170830
  Serious: No
  Sender: FDA-Public Use
  Company Number: US-JNJFOC-20161109411

PATIENT
  Sex: Male

DRUGS (1)
  1. KETOCONAZOLE 2 % [Suspect]
     Active Substance: KETOCONAZOLE
     Indication: PRODUCT USED FOR UNKNOWN INDICATION
     Dosage: 1 TO 2 TIME A WEEK
     Route: 061

REACTIONS (1)
  - Drug ineffective [Unknown]
